FAERS Safety Report 13203152 (Version 1)
Quarter: 2017Q1

REPORT INFORMATION
  Report Type: Spontaneous
  Country: US (occurrence: US)
  Receive Date: 20170209
  Receipt Date: 20170209
  Transmission Date: 20170428
  Serious: Yes (Other)
  Sender: FDA-Public Use
  Company Number: US-AMGEN-USASP2017010117

PATIENT
  Age: 65 Year
  Sex: Male
  Weight: 126.98 kg

DRUGS (13)
  1. REPATHA [Suspect]
     Active Substance: EVOLOCUMAB
     Indication: HYPERLIPIDAEMIA
     Dosage: 140 MG, Q2WK
     Route: 058
     Dates: start: 20161201
  2. CLOPIDOGREL [Concomitant]
     Active Substance: CLOPIDOGREL BISULFATE
     Dosage: 75 MG, QD
     Route: 048
  3. ZETIA [Concomitant]
     Active Substance: EZETIMIBE
     Dosage: 10 MG, QD
     Route: 048
  4. REPATHA [Suspect]
     Active Substance: EVOLOCUMAB
     Dosage: UNK
     Route: 058
     Dates: start: 20161216
  5. REPATHA [Suspect]
     Active Substance: EVOLOCUMAB
     Dosage: UNK
     Route: 058
     Dates: start: 20170101
  6. IMDUR [Concomitant]
     Active Substance: ISOSORBIDE MONONITRATE
     Dosage: 30 MG, QD
     Route: 048
  7. METFORMIN [Concomitant]
     Active Substance: METFORMIN HYDROCHLORIDE
     Dosage: 500 MG, BID
     Route: 048
  8. METOPROLOL TARTRATE. [Concomitant]
     Active Substance: METOPROLOL TARTRATE
     Dosage: 25 MG, BID
     Route: 048
  9. STOOL SOFTENER [Concomitant]
     Dosage: UNK UNK, QD
     Route: 048
  10. ASPIRIN. [Concomitant]
     Active Substance: ASPIRIN
     Dosage: 81 MG, QD
     Route: 048
  11. LISINOPRIL. [Concomitant]
     Active Substance: LISINOPRIL
     Dosage: 40 MG, QD
     Route: 048
  12. REPATHA [Suspect]
     Active Substance: EVOLOCUMAB
     Dosage: UNK
     Route: 058
     Dates: end: 20170115
  13. SALMON OIL 1000 [Concomitant]
     Dosage: 200 MG, QD
     Route: 048

REACTIONS (15)
  - Drug hypersensitivity [Recovering/Resolving]
  - Pain [Unknown]
  - Food allergy [Unknown]
  - Burning sensation [Recovering/Resolving]
  - Abdominal pain [Unknown]
  - Blood urine present [Unknown]
  - Pruritus generalised [Recovering/Resolving]
  - Cellulitis [Recovering/Resolving]
  - Urticaria [Recovering/Resolving]
  - Urinary tract discomfort [Unknown]
  - Chills [Unknown]
  - Arthropod bite [Unknown]
  - Pollakiuria [Unknown]
  - Feeling abnormal [Unknown]
  - Influenza [Unknown]

NARRATIVE: CASE EVENT DATE: 201612
